FAERS Safety Report 24083154 (Version 1)
Quarter: 2024Q3

REPORT INFORMATION
  Report Type: Spontaneous
  Country: PT (occurrence: PT)
  Receive Date: 20240712
  Receipt Date: 20240712
  Transmission Date: 20241017
  Serious: Yes (Other)
  Sender: AJANTA PHARMA
  Company Number: PT-AJANTA-2024AJA00126

PATIENT
  Age: 18 Year
  Sex: Female

DRUGS (3)
  1. TETRABENAZINE [Suspect]
     Active Substance: TETRABENAZINE
     Indication: Tourette^s disorder
  2. TETRABENAZINE [Suspect]
     Active Substance: TETRABENAZINE
     Dosage: 12.5 MG AT BREAKFAST, 12.5 MG AT LUNCH, AND 25 MG LATER IN THE AFTERNOON
  3. TETRABENAZINE [Suspect]
     Active Substance: TETRABENAZINE

REACTIONS (1)
  - Dystonia [Recovered/Resolved]
